FAERS Safety Report 18355392 (Version 1)
Quarter: 2020Q4

REPORT INFORMATION
  Report Type: Spontaneous
  Country: US (occurrence: US)
  Receive Date: 20201006
  Receipt Date: 20201006
  Transmission Date: 20210114
  Serious: Yes (Hospitalization)
  Sender: FDA-Public Use
  Company Number: None

PATIENT
  Sex: Female

DRUGS (8)
  1. CIPROFLOXACN [Concomitant]
     Active Substance: CIPROFLOXACIN
  2. TRIAMCINOLON OIN [Concomitant]
  3. LEVOFLOXACIN. [Concomitant]
     Active Substance: LEVOFLOXACIN
  4. TOBI PODHALER [Concomitant]
     Active Substance: TOBRAMYCIN
  5. ERYTHROMYCIN. [Concomitant]
     Active Substance: ERYTHROMYCIN
  6. PULMOZYME [Suspect]
     Active Substance: DORNASE ALFA
     Indication: CYSTIC FIBROSIS
     Route: 055
     Dates: start: 20180224
  7. AMOXICILLIN. [Concomitant]
     Active Substance: AMOXICILLIN
  8. DOXYCYC MONO [Concomitant]
     Active Substance: DOXYCYCLINE

REACTIONS (2)
  - Cystic fibrosis respiratory infection suppression [None]
  - Hospitalisation [None]
